FAERS Safety Report 18648773 (Version 1)
Quarter: 2020Q4

REPORT INFORMATION
  Report Type: Spontaneous
  Country: DE (occurrence: DE)
  Receive Date: 20201222
  Receipt Date: 20201222
  Transmission Date: 20210114
  Serious: Yes (Other)
  Sender: FDA-Public Use
  Company Number: DE-BIOMARINAP-DE-2020-133910

PATIENT
  Sex: Female

DRUGS (1)
  1. NAGLAZYME [Suspect]
     Active Substance: GALSULFASE
     Indication: MUCOPOLYSACCHARIDOSIS VI
     Dosage: UNK, QW
     Route: 042
     Dates: start: 2006

REACTIONS (11)
  - Pain [Unknown]
  - Muscle spasticity [Unknown]
  - Asthenia [Unknown]
  - Hypoaesthesia [Unknown]
  - Urinary retention [Unknown]
  - Dyspnoea [Unknown]
  - Muscular weakness [Unknown]
  - Dysstasia [Unknown]
  - Blindness unilateral [Unknown]
  - Visual impairment [Unknown]
  - Paraesthesia [Unknown]
